FAERS Safety Report 17446213 (Version 2)
Quarter: 2020Q1

REPORT INFORMATION
  Report Type: Spontaneous
  Country: FR (occurrence: FR)
  Receive Date: 20200221
  Receipt Date: 20200311
  Transmission Date: 20200409
  Serious: Yes (Hospitalization, Other)
  Sender: FDA-Public Use
  Company Number: FR-JNJFOC-20200226421

PATIENT
  Age: 77 Year
  Sex: Female

DRUGS (1)
  1. RIVAROXABAN [Suspect]
     Active Substance: RIVAROXABAN
     Indication: PULMONARY EMBOLISM
     Dosage: 1 DF, QD
     Route: 048
     Dates: start: 201811

REACTIONS (7)
  - Fall [Unknown]
  - Dizziness [Unknown]
  - Product dose omission [Unknown]
  - Epistaxis [Unknown]
  - Haematochezia [Unknown]
  - Rib fracture [Unknown]
  - Respiratory distress [Unknown]

NARRATIVE: CASE EVENT DATE: 2018
